FAERS Safety Report 17572024 (Version 1)
Quarter: 2020Q1

REPORT INFORMATION
  Report Type: Spontaneous
  Country: US (occurrence: US)
  Receive Date: 20200322
  Receipt Date: 20200322
  Transmission Date: 20200409
  Serious: Yes (Other)
  Sender: FDA-Public Use
  Company Number: None

PATIENT
  Age: 43 Year
  Sex: Female
  Weight: 74.25 kg

DRUGS (1)
  1. 70% ISOPROPYL ALCOHOL [Suspect]
     Active Substance: ISOPROPYL ALCOHOL
     Indication: WOUND TREATMENT
     Route: 061
     Dates: start: 20200322, end: 20200322

REACTIONS (2)
  - Swelling [None]
  - Muscular weakness [None]

NARRATIVE: CASE EVENT DATE: 20200322
